FAERS Safety Report 8612454-5 (Version None)
Quarter: 2012Q3

REPORT INFORMATION
  Report Type: 
  Country: None (occurrence: None)
  Receive Date: 20120809
  Receipt Date: 20120725
  Transmission Date: 20120928
  Serious: Yes (Death, Other)
  Sender: FDA-Public Use
  Company Number: 2012MA009122

PATIENT
  Age: 50 Year
  Sex: Male
  Weight: 114.76 kg

DRUGS (1)
  1. KADIAN [Suspect]
     Indication: DRUG ABUSE

REACTIONS (3)
  - TOXICITY TO VARIOUS AGENTS [None]
  - UNRESPONSIVE TO STIMULI [None]
  - DRUG ABUSE [None]
